FAERS Safety Report 6239400-6 (Version None)
Quarter: 2009Q2

REPORT INFORMATION
  Report Type: 
  Country: None (occurrence: None)
  Receive Date: 20090618
  Receipt Date: 20090618
  Transmission Date: 20091009
  Serious: Yes (Life-Threatening, Other)
  Sender: FDA-Public Use
  Company Number: None

PATIENT
  Age: 54 Year
  Sex: Male
  Weight: 111.1313 kg

DRUGS (1)
  1. ZICAM MATRIXX [Suspect]
     Indication: NASOPHARYNGITIS
     Dosage: 1    3 X DAY NASAL VARIOUS
     Route: 045
     Dates: start: 20051101, end: 20090616

REACTIONS (2)
  - ANOSMIA [None]
  - HYPOGEUSIA [None]
